FAERS Safety Report 16043072 (Version 1)
Quarter: 2019Q1

REPORT INFORMATION
  Report Type: Spontaneous
  Country: FI (occurrence: FI)
  Receive Date: 20190306
  Receipt Date: 20190306
  Transmission Date: 20190418
  Serious: Yes (Other)
  Sender: FDA-Public Use
  Company Number: FI-GLAXOSMITHKLINE-FI2019039610

PATIENT
  Age: 57 Year
  Sex: Female

DRUGS (1)
  1. ANORO ELLIPTA [Suspect]
     Active Substance: UMECLIDINIUM BROMIDE\VILANTEROL TRIFENATATE
     Indication: CHRONIC OBSTRUCTIVE PULMONARY DISEASE
     Dosage: 1,DF,DAILY
     Route: 055
     Dates: start: 20190217, end: 20190217

REACTIONS (4)
  - Eye pain [Unknown]
  - Sinus pain [Unknown]
  - Ocular discomfort [Unknown]
  - Corneal cyst [Unknown]

NARRATIVE: CASE EVENT DATE: 20190217
